FAERS Safety Report 18921811 (Version 2)
Quarter: 2021Q2

REPORT INFORMATION
  Report Type: Spontaneous
  Country: US (occurrence: US)
  Receive Date: 20210222
  Receipt Date: 20210520
  Transmission Date: 20210717
  Serious: Yes (Other)
  Sender: FDA-Public Use
  Company Number: US-GLAXOSMITHKLINE-US2021GSK032843

PATIENT
  Sex: Male

DRUGS (4)
  1. RANITIDINE CAPSULE [Suspect]
     Active Substance: RANITIDINE
     Indication: ABDOMINAL DISCOMFORT
     Dosage: UNKNOWN AT THIS TIME OVER THE COUNTER
     Route: 065
     Dates: start: 201201, end: 201501
  2. RANITIDINE. [Suspect]
     Active Substance: RANITIDINE
     Indication: ABDOMINAL DISCOMFORT
     Dosage: UNK, QD
     Route: 065
     Dates: start: 201201, end: 201501
  3. RANITIDINE. [Suspect]
     Active Substance: RANITIDINE
     Indication: ABDOMINAL DISCOMFORT
     Dosage: UNK, QD
     Route: 065
     Dates: start: 201201, end: 201501
  4. ZANTAC [Suspect]
     Active Substance: RANITIDINE HYDROCHLORIDE
     Indication: ABDOMINAL DISCOMFORT
     Dosage: UNKNOWN AT THIS TIME OVER THE COUNTER
     Route: 065
     Dates: start: 201201, end: 201501

REACTIONS (1)
  - Pancreatic carcinoma [Unknown]
